FAERS Safety Report 24323538 (Version 1)
Quarter: 2024Q3

REPORT INFORMATION
  Report Type: Spontaneous
  Country: US (occurrence: None)
  Receive Date: 20240916
  Receipt Date: 20240916
  Transmission Date: 20241017
  Serious: No
  Sender: ASTRAZENECA
  Company Number: 2024A209937

PATIENT
  Sex: Female

DRUGS (2)
  1. ROSUVASTATIN [Suspect]
     Active Substance: ROSUVASTATIN\ROSUVASTATIN CALCIUM
     Route: 048
  2. LORBRENA [Suspect]
     Active Substance: LORLATINIB
     Indication: Small cell lung cancer

REACTIONS (4)
  - Hyperlipidaemia [Recovering/Resolving]
  - Weight increased [Recovering/Resolving]
  - Memory impairment [Recovering/Resolving]
  - Blood creatine phosphokinase increased [Recovering/Resolving]
